FAERS Safety Report 20324739 (Version 2)
Quarter: 2023Q1

REPORT INFORMATION
  Report Type: Spontaneous
  Country: US (occurrence: US)
  Receive Date: 20220111
  Receipt Date: 20230210
  Transmission Date: 20230418
  Serious: Yes (Other)
  Sender: FDA-Public Use
  Company Number: US-MYOVANT SCIENCES GMBH-2021MYSCI1200046

PATIENT
  Age: 73 Year
  Sex: Male

DRUGS (6)
  1. ORGOVYX [Suspect]
     Active Substance: RELUGOLIX
     Indication: Prostate cancer
     Dosage: 120 MILLIGRAM, QD
     Route: 048
     Dates: start: 202110
  2. ORGOVYX [Suspect]
     Active Substance: RELUGOLIX
     Dosage: UNK
  3. VALSARTAN [Concomitant]
     Active Substance: VALSARTAN
     Indication: Hypertension
     Dosage: 160 MILLIGRAM, QD
     Route: 048
  4. METFORMIN [Concomitant]
     Active Substance: METFORMIN HYDROCHLORIDE
     Indication: Glucose tolerance impaired
     Dosage: 500 MILLIGRAM, QD
     Route: 048
  5. ROSUVASTATIN [Concomitant]
     Active Substance: ROSUVASTATIN
     Indication: Blood cholesterol
     Dosage: 5 MILLIGRAM, QHS
     Route: 048
  6. FLOMAX                             /01280302/ [Concomitant]
     Indication: Prostatomegaly
     Dosage: 0.4 MILLIGRAM, QD
     Route: 048

REACTIONS (4)
  - Atrial fibrillation [Unknown]
  - Heart rate increased [Not Recovered/Not Resolved]
  - Heart rate irregular [Unknown]
  - Therapy interrupted [Unknown]

NARRATIVE: CASE EVENT DATE: 20211101
